FAERS Safety Report 9214808 (Version 3)
Quarter: 2014Q2

REPORT INFORMATION
  Report Type: Report from Study
  Country: JP (occurrence: JP)
  Receive Date: 20130405
  Receipt Date: 20140619
  Transmission Date: 20141212
  Serious: Yes (Hospitalization)
  Sender: FDA-Public Use
  Company Number: JP-ACTELION-A-CH2013-81400

PATIENT
  Age: 62 Year
  Sex: Female
  Weight: 49.5 kg

DRUGS (15)
  1. TRACLEER [Suspect]
     Indication: PULMONARY ARTERIAL HYPERTENSION
     Dosage: 125 MG, QD
     Route: 048
     Dates: start: 20120227, end: 20120302
  2. TRACLEER [Suspect]
     Dosage: 62.5 MG, OD
     Route: 048
     Dates: start: 20120225, end: 20120228
  3. TRACLEER [Suspect]
     Dosage: 62.5 MG, BID
     Route: 048
     Dates: start: 20120303
  4. WARFARIN POTASSIUM [Suspect]
  5. TADALAFIL [Suspect]
     Dosage: 20 MG, UNK
     Route: 048
     Dates: start: 20120530, end: 20120610
  6. TORASEMIDE [Concomitant]
  7. LANSOPRAZOLE [Concomitant]
  8. SPIRONOLACTONE [Concomitant]
  9. AMLODIPINE BESILATE [Concomitant]
  10. ASPIRIN [Concomitant]
  11. POTASSIUM CHLORIDE [Concomitant]
  12. METOPROLOL TARTRATE [Concomitant]
  13. SENNOSIDE [Concomitant]
  14. SODIUM VALPROATE [Concomitant]
  15. OXYGEN [Concomitant]

REACTIONS (3)
  - Oedema peripheral [Recovering/Resolving]
  - Gamma-glutamyltransferase increased [Recovered/Resolved]
  - International normalised ratio abnormal [Recovering/Resolving]
